FAERS Safety Report 5612058-2 (Version None)
Quarter: 2008Q1

REPORT INFORMATION
  Report Type: 
  Country: None (occurrence: None)
  Receive Date: 20080129
  Receipt Date: 20080129
  Transmission Date: 20080703
  Serious: Yes (Hospitalization, Other)
  Sender: FDA-Public Use
  Company Number: None

PATIENT
  Age: 36 Year
  Sex: Female
  Weight: 51.2565 kg

DRUGS (1)
  1. REGLAN [Suspect]
     Indication: NAUSEA
     Dosage: 10 MG. 4 TIMES PER DAY PO
     Route: 048
     Dates: start: 20070510, end: 20071030

REACTIONS (5)
  - AKATHISIA [None]
  - ANXIETY [None]
  - JOINT LOCK [None]
  - MUSCLE TWITCHING [None]
  - TARDIVE DYSKINESIA [None]
